FAERS Safety Report 5071968-8 (Version None)
Quarter: 2006Q3

REPORT INFORMATION
  Report Type: 
  Country: None (occurrence: None)
  Receive Date: 20060714
  Receipt Date: 20060601
  Transmission Date: 20061208
  Serious: No
  Sender: FDA-Public Use
  Company Number: 2006SP002275

PATIENT
  Age: 72 Year
  Sex: Female
  Weight: 64.4108 kg

DRUGS (6)
  1. LUNESTA [Suspect]
     Indication: INSOMNIA
     Dosage: 3 MG;HS;ORAL
     Route: 048
     Dates: start: 20060201, end: 20060530
  2. HYDROCHLOROTHIAZIDE [Suspect]
     Dates: start: 20060101, end: 20060101
  3. HYDROCODONE BITARTRATE [Concomitant]
  4. ATORVASTATIN CALCIUM [Concomitant]
  5. EFFEXOR [Concomitant]
  6. LITHIUM [Concomitant]

REACTIONS (2)
  - TREMOR [None]
  - VISUAL DISTURBANCE [None]
